FAERS Safety Report 5227107-3 (Version None)
Quarter: 2007Q1

REPORT INFORMATION
  Report Type: 
  Country: None (occurrence: None)
  Receive Date: 20070130
  Receipt Date: 20070127
  Transmission Date: 20070707
  Serious: Yes (Hospitalization)
  Sender: FDA-Public Use
  Company Number: 222318

PATIENT
  Age: 58 Year
  Sex: Male
  Weight: 72.5 kg

DRUGS (3)
  1. AVASTIN [Suspect]
     Indication: ADENOCARCINOMA PANCREAS
     Dosage: 720 MG, DAYS 1+15, INTRAVENOUS
     Route: 042
     Dates: start: 20060202
  2. GEMCITABINE [Suspect]
     Indication: ADENOCARCINOMA PANCREAS
     Dosage: 1900 MG, DAYS 1+15, INTRAVENOUS
     Route: 042
     Dates: start: 20060202
  3. OXALIPLATIN [Suspect]
     Indication: ADENOCARCINOMA PANCREAS
     Dosage: 190 MG, 2/MONTH, INTRAVENOUS
     Route: 042
     Dates: start: 20060203

REACTIONS (4)
  - HYPERGLYCAEMIA [None]
  - OESOPHAGEAL CANDIDIASIS [None]
  - OESOPHAGITIS [None]
  - VOMITING [None]
